FAERS Safety Report 4432279-4 (Version None)
Quarter: 2004Q3

REPORT INFORMATION
  Report Type: 
  Country: None (occurrence: None)
  Receive Date: 20040820
  Receipt Date: 20040810
  Transmission Date: 20050211
  Serious: Yes (Hospitalization)
  Sender: FDA-Public Use
  Company Number: 8006988

PATIENT
  Age: 20 Year
  Sex: Female

DRUGS (5)
  1. KEPPRA [Suspect]
     Dosage: 3000 MG, D; PO
     Route: 048
     Dates: start: 20040415
  2. DEPAKENE [Suspect]
     Dosage: 2000 MG, D; PO
     Route: 048
     Dates: start: 20040415, end: 20040711
  3. RIVOTRIL [Suspect]
     Dosage: 120 MG, D; PO
     Route: 048
     Dates: start: 20040415
  4. THERALENE [Suspect]
     Dosage: 30 MG, D; PO
     Route: 048
     Dates: start: 20040415
  5. SKENAN [Suspect]
     Dosage: 20 MG, D; PO
     Route: 048
     Dates: start: 20040415

REACTIONS (1)
  - PANCREATITIS NECROTISING [None]
